FAERS Safety Report 12101506 (Version 1)
Quarter: 2016Q1

REPORT INFORMATION
  Report Type: Spontaneous
  Country: US (occurrence: US)
  Receive Date: 20160222
  Receipt Date: 20160222
  Transmission Date: 20160526
  Serious: No
  Sender: FDA-Public Use
  Company Number: US-CELGENEUS-USA-2016024315

PATIENT
  Sex: Female

DRUGS (3)
  1. ALOE [Concomitant]
     Active Substance: ALOE
     Indication: PRURITUS
     Route: 065
  2. CALAMINE LOTION [Concomitant]
     Active Substance: CALAMINE LOTION
     Indication: PRURITUS
     Route: 065
  3. OTEZLA [Suspect]
     Active Substance: APREMILAST
     Indication: PSORIASIS
     Dosage: 60 MILLIGRAM
     Route: 048

REACTIONS (1)
  - Rash pruritic [Not Recovered/Not Resolved]
